FAERS Safety Report 9440033 (Version 1)
Quarter: 2013Q3

REPORT INFORMATION
  Report Type: Spontaneous
  Country: JP (occurrence: JP)
  Receive Date: 20130805
  Receipt Date: 20130805
  Transmission Date: 20140515
  Serious: Yes (Other)
  Sender: FDA-Public Use
  Company Number: JP-BAYER-2013-093159

PATIENT
  Age: 84 Year
  Sex: Female

DRUGS (2)
  1. BAYASPIRIN [Suspect]
     Indication: PERIPHERAL ARTERIAL OCCLUSIVE DISEASE
     Dosage: 100 MG, QD
     Route: 048
     Dates: start: 20121211, end: 20130421
  2. PLETAAL [Concomitant]
     Route: 048

REACTIONS (1)
  - Hepatic function abnormal [None]
